FAERS Safety Report 7753133-6 (Version None)
Quarter: 2011Q3

REPORT INFORMATION
  Report Type: 
  Country: None (occurrence: None)
  Receive Date: 20110915
  Receipt Date: 20110908
  Transmission Date: 20111222
  Serious: Yes (Disabling)
  Sender: FDA-Public Use
  Company Number: CA-BRISTOL-MYERS SQUIBB COMPANY-15889801

PATIENT
  Age: 56 Year
  Sex: Female

DRUGS (16)
  1. ABILIFY [Suspect]
     Indication: POST-TRAUMATIC STRESS DISORDER
     Dosage: 7APR11 2MG DOSE INCREASED ON MAY11 4MG DURATION OF THERAPY:2 AND HALF MONTHS
     Route: 048
     Dates: start: 20110407, end: 20110617
  2. GLYCOSIDE [Concomitant]
  3. ABILIFY [Suspect]
     Indication: MAJOR DEPRESSION
     Dosage: 7APR11 2MG DOSE INCREASED ON MAY11 4MG DURATION OF THERAPY:2 AND HALF MONTHS
     Route: 048
     Dates: start: 20110407, end: 20110617
  4. ABILIFY [Suspect]
     Indication: BIPOLAR II DISORDER
     Dosage: 7APR11 2MG DOSE INCREASED ON MAY11 4MG DURATION OF THERAPY:2 AND HALF MONTHS
     Route: 048
     Dates: start: 20110407, end: 20110617
  5. LASIX [Concomitant]
  6. ESCITALOPRAM [Concomitant]
     Indication: POST-TRAUMATIC STRESS DISORDER
  7. PERCOCET [Concomitant]
  8. ESCITALOPRAM [Concomitant]
     Indication: MAJOR DEPRESSION
  9. TRAZODONE HCL [Concomitant]
  10. METFORMIN HYDROCHLORIDE [Concomitant]
  11. GABAPENTINE [Concomitant]
  12. CLONAZEPAM [Concomitant]
  13. LIPITOR [Concomitant]
  14. MOTILIUM [Concomitant]
  15. CYMBALTA [Concomitant]
     Indication: MAJOR DEPRESSION
  16. CYMBALTA [Concomitant]
     Indication: POST-TRAUMATIC STRESS DISORDER

REACTIONS (16)
  - DIZZINESS [None]
  - URINE OUTPUT INCREASED [None]
  - HEPATIC STEATOSIS [None]
  - HEADACHE [None]
  - BLOOD GLUCOSE INCREASED [None]
  - DIARRHOEA [None]
  - NAUSEA [None]
  - CONSTIPATION [None]
  - ABDOMINAL PAIN [None]
  - GALLBLADDER DISORDER [None]
  - FATIGUE [None]
  - VOMITING [None]
  - ABDOMINAL DISTENSION [None]
  - DECREASED APPETITE [None]
  - PAIN [None]
  - THIRST [None]
